FAERS Safety Report 5619192-1 (Version None)
Quarter: 2008Q1

REPORT INFORMATION
  Report Type: 
  Country: None (occurrence: None)
  Receive Date: 20080207
  Receipt Date: 20080129
  Transmission Date: 20080703
  Serious: Yes (Hospitalization)
  Sender: FDA-Public Use
  Company Number: US-MERCK-0801USA05821

PATIENT
  Age: 78 Year
  Sex: Male

DRUGS (7)
  1. VYTORIN [Suspect]
     Indication: BLOOD CHOLESTEROL
     Route: 048
     Dates: end: 20080101
  2. AMLODIPINE BESYLATE [Concomitant]
     Route: 065
  3. METOPROLOL [Concomitant]
     Route: 065
  4. PLAVIX [Concomitant]
     Route: 065
  5. METFORMIN [Concomitant]
     Route: 065
  6. HYDRODIURIL [Concomitant]
     Route: 065
  7. PRINIVIL [Concomitant]
     Route: 048

REACTIONS (1)
  - ARTERIAL OCCLUSIVE DISEASE [None]
